FAERS Safety Report 7321217-2 (Version None)
Quarter: 2011Q1

REPORT INFORMATION
  Report Type: 
  Country: None (occurrence: None)
  Receive Date: 20110228
  Receipt Date: 20110221
  Transmission Date: 20110831
  Serious: Yes (Death, Other)
  Sender: FDA-Public Use
  Company Number: DE-CELGENEUS-062-C5013-11021182

PATIENT
  Age: 70 Year
  Sex: Female

DRUGS (4)
  1. CC-5013 [Suspect]
     Indication: MULTIPLE MYELOMA
     Dosage: 25 MILLIGRAM
     Route: 048
     Dates: start: 20070608, end: 20080401
  2. MELPHALAN [Suspect]
     Indication: MULTIPLE MYELOMA
     Route: 065
     Dates: start: 20070608, end: 20080704
  3. CC-5013 [Suspect]
     Dosage: 25 MILLIGRAM
     Dates: start: 20080701, end: 20080908
  4. PREDNISONE [Suspect]
     Indication: MULTIPLE MYELOMA
     Route: 065
     Dates: start: 20070608, end: 20080704

REACTIONS (3)
  - ACUTE MYELOID LEUKAEMIA [None]
  - MULTIPLE MYELOMA [None]
  - MYELODYSPLASTIC SYNDROME [None]
